FAERS Safety Report 5571446-3 (Version None)
Quarter: 2007Q4

REPORT INFORMATION
  Report Type: 
  Country: None (occurrence: None)
  Receive Date: 20071221
  Receipt Date: 20071030
  Transmission Date: 20080405
  Serious: Yes (Other)
  Sender: FDA-Public Use
  Company Number: US-PURDUE-USA_2007_0030226

PATIENT

DRUGS (5)
  1. DURAGESIC-100 [Concomitant]
     Dosage: 100 MG, UNK
     Route: 062
  2. ROXICODONE [Concomitant]
     Dosage: 30 MG, UNK
  3. LORTAB [Suspect]
     Indication: DRUG ABUSE
     Dosage: 10 MG, UNK
  4. METHADONE HCL [Suspect]
     Indication: DRUG ABUSE
  5. OXYCONTIN [Suspect]
     Indication: DRUG ABUSE
     Dosage: UNK, SEE TEXT
     Dates: end: 20040101

REACTIONS (18)
  - ABDOMINAL PAIN [None]
  - COLD SWEAT [None]
  - CONSTIPATION [None]
  - DIARRHOEA [None]
  - DRUG DEPENDENCE [None]
  - DRUG WITHDRAWAL SYNDROME [None]
  - DYSURIA [None]
  - FEELING COLD [None]
  - HEADACHE [None]
  - HEART RATE INCREASED [None]
  - HEPATIC ENZYME INCREASED [None]
  - HYPERTENSION [None]
  - MULTI-ORGAN FAILURE [None]
  - OEDEMA PERIPHERAL [None]
  - PAIN [None]
  - RESPIRATORY ARREST [None]
  - SUBSTANCE ABUSE [None]
  - VOMITING [None]
